FAERS Safety Report 11149567 (Version 1)
Quarter: 2015Q2

REPORT INFORMATION
  Report Type: Spontaneous
  Country: FR (occurrence: FR)
  Receive Date: 20150529
  Receipt Date: 20150529
  Transmission Date: 20150821
  Serious: Yes (Hospitalization, Other)
  Sender: FDA-Public Use
  Company Number: FR-PFIZER INC-2015174224

PATIENT
  Age: 82 Year
  Sex: Male

DRUGS (9)
  1. LERCAN [Concomitant]
     Active Substance: LERCANIDIPINE
     Dosage: 10 (UNITS UNSPECIFIED), UNK
  2. KARDEGIC [Interacting]
     Active Substance: ASPIRIN LYSINE
     Indication: MYOCARDIAL ISCHAEMIA
     Dosage: 75 MG, DAILY
     Route: 048
     Dates: end: 20150107
  3. DUTASTERIDE. [Concomitant]
     Active Substance: DUTASTERIDE
     Dosage: 0.5 (UNSPECIFIED UNITS) UNK
  4. TAHOR [Suspect]
     Active Substance: ATORVASTATIN CALCIUM
     Indication: HYPERCHOLESTEROLAEMIA
     Dosage: 1 DF, DAILY
     Route: 048
  5. TAMSULOSIN [Concomitant]
     Active Substance: TAMSULOSIN
     Dosage: 0.4 MG, UNK
  6. COUMADINE [Interacting]
     Active Substance: WARFARIN SODIUM
     Indication: ATRIAL FIBRILLATION
     Dosage: 2 MG, DAILY
     Route: 048
     Dates: start: 20141201, end: 20150105
  7. CARDENSIEL [Concomitant]
     Active Substance: BISOPROLOL FUMARATE
     Dosage: 2.5 MG, UNK
  8. MEDIATENSYL [Concomitant]
     Active Substance: URAPIDIL
     Dosage: 60 MG, UNK
  9. OMEPRAZOLE. [Concomitant]
     Active Substance: OMEPRAZOLE
     Dosage: 10 (UNITS UNSPECIFIED), UNK

REACTIONS (9)
  - Fat embolism [Unknown]
  - Epistaxis [Recovered/Resolved]
  - Anaemia [Recovered/Resolved]
  - Ischaemic hepatitis [Unknown]
  - Duodenal ulcer [Unknown]
  - Renal tubular necrosis [Unknown]
  - Renal haematoma [Recovered/Resolved with Sequelae]
  - Shock haemorrhagic [Unknown]
  - Drug interaction [Unknown]

NARRATIVE: CASE EVENT DATE: 20150103
